FAERS Safety Report 12869121 (Version 4)
Quarter: 2021Q1

REPORT INFORMATION
  Report Type: Spontaneous
  Country: US (occurrence: US)
  Receive Date: 20161021
  Receipt Date: 20210316
  Transmission Date: 20210419
  Serious: Yes (Other)
  Sender: FDA-Public Use
  Company Number: US-PFIZER INC-2016488384

PATIENT
  Age: 53 Year
  Sex: Female
  Weight: 111.1 kg

DRUGS (1)
  1. XELJANZ XR [Suspect]
     Active Substance: TOFACITINIB CITRATE
     Indication: RHEUMATOID ARTHRITIS
     Dosage: 11 MG, 1X/DAY
     Route: 048

REACTIONS (7)
  - Illness [Unknown]
  - Urinary tract infection [Unknown]
  - Pyrexia [Unknown]
  - Large intestine infection [Unknown]
  - Intentional product misuse [Unknown]
  - Myocardial infarction [Recovering/Resolving]
  - Hypotension [Not Recovered/Not Resolved]

NARRATIVE: CASE EVENT DATE: 20170704
